FAERS Safety Report 14343185 (Version 7)
Quarter: 2019Q1

REPORT INFORMATION
  Report Type: Report from Study
  Country: None (occurrence: KR)
  Receive Date: 20180102
  Receipt Date: 20190219
  Transmission Date: 20190417
  Serious: Yes (Hospitalization, Other)
  Sender: FDA-Public Use
  Company Number: KR-ABBVIE-17P-090-2204317-00

PATIENT
  Age: 78 Year
  Sex: Male

DRUGS (27)
  1. VENETOCLAX. [Suspect]
     Active Substance: VENETOCLAX
     Indication: ACUTE MYELOID LEUKAEMIA
     Route: 048
     Dates: start: 20171204, end: 20171204
  2. NEXILEN [Concomitant]
     Indication: ABDOMINAL PAIN UPPER
     Route: 048
     Dates: start: 20171128, end: 20171206
  3. NEXIUM [Concomitant]
     Active Substance: ESOMEPRAZOLE MAGNESIUM
     Indication: REFLUX LARYNGITIS
     Route: 048
     Dates: start: 20171207, end: 20171207
  4. GRASIN [Concomitant]
     Route: 041
     Dates: start: 20171225, end: 20171228
  5. EFFECTRA [Concomitant]
     Indication: INFECTION PROPHYLAXIS
     Route: 048
     Dates: start: 20171203, end: 20171213
  6. CHLORPHENIRAMINE. [Concomitant]
     Active Substance: CHLORPHENIRAMINE
     Indication: PROPHYLAXIS
     Route: 042
     Dates: start: 20171218, end: 20180824
  7. GRASIN [Concomitant]
     Route: 058
     Dates: start: 20171218, end: 20180626
  8. SILODOSIN. [Concomitant]
     Active Substance: SILODOSIN
     Indication: NOCTURIA
  9. CYTARABINE. [Suspect]
     Active Substance: CYTARABINE
     Indication: ACUTE MYELOID LEUKAEMIA
     Dosage: DAYS 1-10 OF 28 DAY CYCLE.
     Route: 058
     Dates: start: 20171204, end: 20171213
  10. MEGACE [Concomitant]
     Active Substance: MEGESTROL ACETATE
     Indication: DECREASED APPETITE
     Route: 048
     Dates: start: 20171203, end: 20171217
  11. URSA [Concomitant]
     Active Substance: URSODIOL
     Indication: BLOOD BILIRUBIN INCREASED
     Route: 048
     Dates: start: 20171203, end: 20171217
  12. GRASIN [Concomitant]
     Indication: NEUTROPENIA
     Route: 041
     Dates: start: 20171223, end: 20180809
  13. VENETOCLAX. [Suspect]
     Active Substance: VENETOCLAX
     Route: 048
     Dates: start: 20171206, end: 20171206
  14. VENETOCLAX. [Suspect]
     Active Substance: VENETOCLAX
     Route: 048
     Dates: start: 20180118
  15. NEXIUM [Concomitant]
     Active Substance: ESOMEPRAZOLE MAGNESIUM
     Route: 048
     Dates: start: 20171208, end: 20171221
  16. FLIVAS [Concomitant]
     Active Substance: NAFTOPIDIL
     Indication: POLLAKIURIA
     Route: 048
     Dates: start: 20171211, end: 20171217
  17. DIOGEL [Concomitant]
     Indication: ABDOMINAL PAIN UPPER
     Route: 048
     Dates: start: 20171203, end: 20171213
  18. VENETOCLAX. [Suspect]
     Active Substance: VENETOCLAX
     Route: 048
     Dates: start: 20171207, end: 20171221
  19. ALLOPURINOL. [Concomitant]
     Active Substance: ALLOPURINOL
     Indication: PROPHYLAXIS
     Route: 048
     Dates: start: 20171203, end: 20171212
  20. NEXILEN [Concomitant]
     Route: 048
     Dates: start: 20171222, end: 20171222
  21. ORNITHINE OXOGLURATE [Concomitant]
     Active Substance: ORNITHINE OXOGLURATE
     Indication: BLOOD BILIRUBIN INCREASED
     Route: 041
     Dates: start: 20171204, end: 20171212
  22. VENETOCLAX. [Suspect]
     Active Substance: VENETOCLAX
     Route: 048
     Dates: start: 20171205, end: 20171205
  23. NORMAL SALINE [Concomitant]
     Active Substance: SODIUM CHLORIDE
     Indication: PROPHYLAXIS
     Route: 042
     Dates: start: 20171203, end: 20171214
  24. SILODOSIN. [Concomitant]
     Active Substance: SILODOSIN
     Indication: POLLAKIURIA
     Route: 048
     Dates: start: 20171218, end: 20171222
  25. SILODOSIN. [Concomitant]
     Active Substance: SILODOSIN
     Indication: URINARY RETENTION
  26. LEVOFEXIN [Concomitant]
     Active Substance: LEVOFLOXACIN
     Indication: INFECTION PROPHYLAXIS
     Route: 048
     Dates: start: 20171203, end: 20171213
  27. CYTARABINE. [Suspect]
     Active Substance: CYTARABINE
     Dosage: DAYS 1-10 OF 28 DAY CYCLE.
     Route: 058
     Dates: start: 20180118

REACTIONS (2)
  - Tonsillitis [Recovered/Resolved]
  - Oral candidiasis [Recovered/Resolved]

NARRATIVE: CASE EVENT DATE: 20171222
